FAERS Safety Report 5244003-6 (Version None)
Quarter: 2007Q1

REPORT INFORMATION
  Report Type: 
  Country: None (occurrence: None)
  Receive Date: 20070222
  Receipt Date: 20070213
  Transmission Date: 20070707
  Serious: Yes (Hospitalization, Other)
  Sender: FDA-Public Use
  Company Number: AU-BRISTOL-MYERS SQUIBB COMPANY-13678560

PATIENT
  Age: 51 Year
  Sex: Female

DRUGS (14)
  1. PACLITAXEL [Suspect]
     Indication: NON-SMALL CELL LUNG CANCER
     Route: 042
     Dates: start: 20061110
  2. CARBOPLATIN [Suspect]
     Indication: NON-SMALL CELL LUNG CANCER
     Route: 042
     Dates: start: 20061110
  3. PF-3512676 [Suspect]
     Indication: NON-SMALL CELL LUNG CANCER
     Route: 058
     Dates: start: 20061117
  4. GLYCERYL TRINITRATE [Concomitant]
     Route: 048
  5. ISOSORBIDE MONONITRATE [Concomitant]
     Route: 048
  6. DILTIAZEM HCL [Concomitant]
     Route: 048
  7. ASPIRIN [Concomitant]
     Route: 048
  8. ESCITALOPRAM OXALATE [Concomitant]
     Route: 048
  9. TEMAZEPAM [Concomitant]
     Route: 048
  10. TIOTROPIUM BROMIDE [Concomitant]
     Route: 048
  11. SALBUTAMOL SULFATE [Concomitant]
     Route: 048
  12. OXYCODONE HCL [Concomitant]
     Route: 048
  13. METOCLOPRAMIDE [Concomitant]
     Route: 048
  14. DOCUSATE SODIUM [Concomitant]
     Route: 048
     Dates: start: 20061031

REACTIONS (5)
  - ANAEMIA [None]
  - ASTHENIA [None]
  - DIZZINESS POSTURAL [None]
  - FALL [None]
  - HYPOTENSION [None]
